FAERS Safety Report 23285340 (Version 2)
Quarter: 2023Q4

REPORT INFORMATION
  Report Type: Spontaneous
  Country: JP (occurrence: None)
  Receive Date: 20231211
  Receipt Date: 20231215
  Transmission Date: 20240109
  Serious: Yes (Hospitalization, Other)
  Sender: FDA-Public Use
  Company Number: 2023A278718

PATIENT
  Age: 79 Year
  Sex: Female

DRUGS (2)
  1. IMFINZI [Suspect]
     Active Substance: DURVALUMAB
     Indication: Hepatocellular carcinoma
     Dosage: DOSE UNKNOWN
     Route: 042
  2. IMJUDO [Suspect]
     Active Substance: TREMELIMUMAB\TREMELIMUMAB-ACTL
     Indication: Hepatocellular carcinoma
     Dosage: DOSE UNKNOWN
     Route: 042

REACTIONS (6)
  - Pancreatitis acute [Unknown]
  - Fulminant type 1 diabetes mellitus [Unknown]
  - Cytokine release syndrome [Recovering/Resolving]
  - Interleukin level increased [Recovering/Resolving]
  - Blood pressure decreased [Recovering/Resolving]
  - Infection [Unknown]
